FAERS Safety Report 5377602-1 (Version None)
Quarter: 2007Q3

REPORT INFORMATION
  Report Type: 
  Country: None (occurrence: None)
  Receive Date: 20070703
  Receipt Date: 20070623
  Transmission Date: 20080115
  Serious: Yes (Other)
  Sender: FDA-Public Use
  Company Number: US-PFIZER INC-2007010049

PATIENT
  Sex: Female

DRUGS (13)
  1. CHANTIX [Suspect]
     Indication: EX-SMOKER
     Dates: start: 20070201, end: 20070203
  2. BENADRYL [Suspect]
  3. ZYRTEC [Suspect]
  4. NORVASC [Concomitant]
  5. ATENOLOL [Concomitant]
  6. ENALAPRIL [Concomitant]
  7. PLAVIX [Concomitant]
  8. DYAZIDE [Concomitant]
  9. ALBUTEROL [Concomitant]
     Route: 055
  10. PREVACID [Concomitant]
  11. ENDOCET [Concomitant]
  12. FIORICET [Concomitant]
  13. ALBUTEROL [Concomitant]
     Route: 055

REACTIONS (2)
  - HYPERSENSITIVITY [None]
  - RENAL DISORDER [None]
